FAERS Safety Report 7651312-X (Version None)
Quarter: 2011Q3

REPORT INFORMATION
  Report Type: 
  Country: None (occurrence: None)
  Receive Date: 20110802
  Receipt Date: 20110728
  Transmission Date: 20111222
  Serious: Yes (Other)
  Sender: FDA-Public Use
  Company Number: US-ABBOTT-11P-163-0842788-00

PATIENT
  Sex: Female

DRUGS (2)
  1. HUMIRA [Suspect]
     Indication: CROHN'S DISEASE
     Dates: start: 20101222, end: 20110301
  2. TRI-SPRINTEC [Concomitant]
     Indication: CONTRACEPTION

REACTIONS (1)
  - INTESTINAL PERFORATION [None]
